FAERS Safety Report 23171575 (Version 1)
Quarter: 2023Q4

REPORT INFORMATION
  Report Type: Spontaneous
  Country: US (occurrence: US)
  Receive Date: 20231110
  Receipt Date: 20231110
  Transmission Date: 20240110
  Serious: Yes (Hospitalization)
  Sender: FDA-Public Use
  Company Number: US-MYLANLABS-2023M1119098

PATIENT
  Age: 58 Year
  Sex: Female

DRUGS (13)
  1. FLUDARABINE [Suspect]
     Active Substance: FLUDARABINE PHOSPHATE
     Indication: Chronic myeloid leukaemia
     Dosage: UNK UNK, CYCLE, 4 CYCLES RECEIVED
     Route: 065
  2. CYTARABINE [Suspect]
     Active Substance: CYTARABINE
     Indication: Acute myeloid leukaemia
     Dosage: 20 MILLIGRAM, BID, DAY 1-10- SALVAGE CHEMOTHERAPY
     Route: 058
     Dates: start: 202111
  3. DEXAMETHASONE [Suspect]
     Active Substance: DEXAMETHASONE
     Indication: COVID-19 pneumonia
     Dosage: UNK
     Route: 065
     Dates: start: 2021
  4. CYCLOPHOSPHAMIDE [Suspect]
     Active Substance: CYCLOPHOSPHAMIDE
     Indication: Chronic myeloid leukaemia
     Dosage: UNK, CYCLE, 4 CYCLES RECEIVED
     Route: 065
  5. RITUXIMAB [Suspect]
     Active Substance: RITUXIMAB
     Indication: Chronic myeloid leukaemia
     Dosage: UNK, CYCLE, 4 CYCLES RECEIVED
     Route: 065
  6. GLASDEGIB [Suspect]
     Active Substance: GLASDEGIB
     Indication: Acute myeloid leukaemia
     Dosage: 100 MILLIGRAM, QD, SALVAGE CHEMOTHERAPY, BY MOUTH  FOR A 28-DAY CYCLE
     Route: 048
     Dates: start: 202111
  7. REMDESIVIR [Concomitant]
     Active Substance: REMDESIVIR
     Indication: COVID-19 pneumonia
     Dosage: UNK
     Route: 065
     Dates: start: 2021
  8. PREDNISONE [Concomitant]
     Active Substance: PREDNISONE
     Indication: Acute febrile neutrophilic dermatosis
     Dosage: 60 MILLIGRAM, QD, BY MOUTH
     Route: 048
     Dates: start: 2021
  9. PREDNISONE [Concomitant]
     Active Substance: PREDNISONE
     Dosage: UNK, RESTARTED AND TAPERED
     Route: 048
     Dates: start: 2021
  10. HYDROCORTISONE [Concomitant]
     Active Substance: HYDROCORTISONE
     Indication: Acute febrile neutrophilic dermatosis
     Dosage: UNK
     Route: 061
     Dates: start: 2021
  11. MEROPENEM [Concomitant]
     Active Substance: MEROPENEM
     Indication: Fungaemia
     Dosage: UNK
     Route: 065
     Dates: start: 2021
  12. LINEZOLID [Concomitant]
     Active Substance: LINEZOLID
     Indication: Fungaemia
     Dosage: UNK
     Route: 065
     Dates: start: 2021
  13. MICAFUNGIN [Concomitant]
     Active Substance: MICAFUNGIN SODIUM
     Indication: Fungaemia
     Dosage: UNK
     Route: 065
     Dates: start: 2021

REACTIONS (10)
  - Acute myeloid leukaemia [Not Recovered/Not Resolved]
  - Pancytopenia [Unknown]
  - Thrombocytopenia [Unknown]
  - Pulmonary embolism [Unknown]
  - Atelectasis [Unknown]
  - Respiratory alkalosis [Unknown]
  - Acute febrile neutrophilic dermatosis [Unknown]
  - Pneumocystis jirovecii pneumonia [Unknown]
  - Drug ineffective [Unknown]
  - Off label use [Unknown]

NARRATIVE: CASE EVENT DATE: 20210101
